FAERS Safety Report 20551480 (Version 2)
Quarter: 2022Q3

REPORT INFORMATION
  Report Type: Spontaneous
  Country: US (occurrence: US)
  Receive Date: 20220304
  Receipt Date: 20220905
  Transmission Date: 20221027
  Serious: No
  Sender: FDA-Public Use
  Company Number: US-BIOVITRUM-2022US03189

PATIENT
  Sex: Female
  Weight: 8 kg

DRUGS (4)
  1. SYNAGIS [Suspect]
     Active Substance: PALIVIZUMAB
     Indication: Antiviral prophylaxis
     Dates: start: 20211215
  2. AMOXICILLIN [Concomitant]
     Active Substance: AMOXICILLIN
  3. CEFDINIR [Concomitant]
     Active Substance: CEFDINIR
  4. IRON\VITAMINS [Concomitant]
     Active Substance: IRON\VITAMINS

REACTIONS (2)
  - Pyrexia [Unknown]
  - Product dose omission issue [Unknown]
